FAERS Safety Report 11498612 (Version 1)
Quarter: 2015Q3

REPORT INFORMATION
  Report Type: Spontaneous
  Country: FR (occurrence: FR)
  Receive Date: 20150912
  Receipt Date: 20150912
  Transmission Date: 20151125
  Serious: Yes (Hospitalization)
  Sender: FDA-Public Use
  Company Number: FR-BAXTER-2015BAX049121

PATIENT
  Age: 63 Year
  Sex: Female

DRUGS (9)
  1. FENTANYL. [Suspect]
     Active Substance: FENTANYL
     Indication: PRODUCT USED FOR UNKNOWN INDICATION
     Route: 062
  2. ENDOXAN 50 MG, COMPRIM? ENROB? [Suspect]
     Active Substance: CYCLOPHOSPHAMIDE
     Indication: SCLERODERMA
     Dosage: 1 DOSAGE FORM
     Route: 048
     Dates: start: 201507, end: 20150804
  3. ENDOXAN 50 MG, COMPRIM? ENROB? [Suspect]
     Active Substance: CYCLOPHOSPHAMIDE
     Indication: DISEASE PROGRESSION
  4. TRACLEER [Concomitant]
     Active Substance: BOSENTAN
     Indication: PRODUCT USED FOR UNKNOWN INDICATION
     Route: 065
  5. OXYNORM [Suspect]
     Active Substance: OXYCODONE HYDROCHLORIDE
     Indication: PRODUCT USED FOR UNKNOWN INDICATION
     Dosage: 50 DOSAGE FORM
     Route: 048
  6. REVATIO [Concomitant]
     Active Substance: SILDENAFIL CITRATE
     Indication: PRODUCT USED FOR UNKNOWN INDICATION
     Route: 065
  7. LYRICA [Concomitant]
     Active Substance: PREGABALIN
     Indication: PRODUCT USED FOR UNKNOWN INDICATION
     Route: 065
  8. INEXIUM [Concomitant]
     Active Substance: ESOMEPRAZOLE
     Indication: PRODUCT USED FOR UNKNOWN INDICATION
     Route: 065
  9. PROKINYL [Concomitant]
     Active Substance: METOCLOPRAMIDE HYDROCHLORIDE
     Indication: PRODUCT USED FOR UNKNOWN INDICATION
     Route: 065

REACTIONS (1)
  - Intestinal obstruction [Recovering/Resolving]

NARRATIVE: CASE EVENT DATE: 201507
